FAERS Safety Report 12972386 (Version 1)
Quarter: 2016Q4

REPORT INFORMATION
  Report Type: Report from Study
  Country: KR (occurrence: KR)
  Receive Date: 20161124
  Receipt Date: 20161124
  Transmission Date: 20170207
  Serious: No
  Sender: FDA-Public Use
  Company Number: KR-PROSTRAKAN-2016-KR-0162

PATIENT

DRUGS (13)
  1. APETROL [Concomitant]
     Indication: HEPATIC CIRRHOSIS
     Dosage: UNKNOWN
     Route: 065
     Dates: start: 20110531
  2. CIPROBAY [Concomitant]
     Active Substance: CIPROFLOXACIN
     Indication: HEPATOCELLULAR CARCINOMA
     Dosage: UNKNOWN
     Route: 065
     Dates: start: 20110531
  3. LEGALON [Concomitant]
     Active Substance: MILK THISTLE
     Indication: HEPATIC CIRRHOSIS
     Dosage: UNKNOWN
     Route: 065
     Dates: start: 20110530
  4. WELLTAMIN [Concomitant]
     Indication: HEPATIC CIRRHOSIS
     Dosage: UNKNOWN
     Route: 065
     Dates: start: 20110531
  5. GRANISETRON [Suspect]
     Active Substance: GRANISETRON
     Indication: PROPHYLAXIS OF NAUSEA AND VOMITING
     Dosage: UNKNOWN
     Route: 062
     Dates: start: 20110530, end: 20110606
  6. CISPLAN [Concomitant]
     Active Substance: CISPLATIN
     Indication: PRODUCT USED FOR UNKNOWN INDICATION
     Dosage: UNKNOWN
     Route: 065
     Dates: start: 20110531, end: 20110531
  7. FLAGYL [Concomitant]
     Active Substance: METRONIDAZOLE\METRONIDAZOLE HYDROCHLORIDE
     Indication: HEPATOCELLULAR CARCINOMA
     Dosage: UNKNOWN
     Route: 065
     Dates: start: 20110601
  8. URSA [Concomitant]
     Indication: HEPATIC CIRRHOSIS
     Dosage: UNKNOWN
     Route: 065
     Dates: start: 20110530
  9. MUCOBA [Concomitant]
     Indication: HEPATIC CIRRHOSIS
     Dosage: UNKNOWN
     Route: 065
     Dates: start: 20110531
  10. H-ZYME [Concomitant]
     Indication: HEPATIC CIRRHOSIS
     Dosage: UNKNOWN
     Route: 065
     Dates: start: 20110531
  11. BONKY [Concomitant]
     Indication: HEPATIC CIRRHOSIS
     Dosage: UNKNOWN
     Route: 065
     Dates: start: 20110531
  12. VITAMEDIN [Concomitant]
     Active Substance: CYANOCOBALAMIN\PYRIDOXINE HYDROCHLORIDE\THIAMINE
     Indication: HEPATIC CIRRHOSIS
     Dosage: UNKNOWN
     Route: 065
     Dates: start: 20110530
  13. PANCRON [Concomitant]
     Indication: HEPATIC CIRRHOSIS
     Dosage: UNKNOWN
     Route: 065
     Dates: start: 20110531

REACTIONS (2)
  - Headache [Recovered/Resolved]
  - Musculoskeletal pain [Recovered/Resolved]

NARRATIVE: CASE EVENT DATE: 20110604
